FAERS Safety Report 13569194 (Version 1)
Quarter: 2017Q2

REPORT INFORMATION
  Report Type: Spontaneous
  Country: GB (occurrence: GB)
  Receive Date: 20170522
  Receipt Date: 20170522
  Transmission Date: 20170830
  Serious: Yes (Hospitalization, Other)
  Sender: FDA-Public Use
  Company Number: GB-MYLANLABS-2017M1029931

PATIENT

DRUGS (6)
  1. PYRIDOXINE [Concomitant]
     Active Substance: PYRIDOXINE
  2. AZITHROMYCIN ANHYDROUS. [Concomitant]
     Active Substance: AZITHROMYCIN ANHYDROUS
  3. LINEZOLID. [Concomitant]
     Active Substance: LINEZOLID
  4. CEFOXITIN [Suspect]
     Active Substance: CEFOXITIN SODIUM
     Indication: MYCOBACTERIUM ABSCESSUS INFECTION
     Route: 042
     Dates: start: 20170330, end: 20170425
  5. IMIPENEM [Concomitant]
     Active Substance: IMIPENEM
  6. MINOCYCLINE [Suspect]
     Active Substance: MINOCYCLINE\MINOCYCLINE HYDROCHLORIDE
     Dates: end: 20170425

REACTIONS (3)
  - Hypoxia [Unknown]
  - Rash [Recovered/Resolved]
  - Hypercapnia [Unknown]

NARRATIVE: CASE EVENT DATE: 20170422
